FAERS Safety Report 7246382-7 (Version None)
Quarter: 2011Q1

REPORT INFORMATION
  Report Type: 
  Country: None (occurrence: None)
  Receive Date: 20110126
  Receipt Date: 20110106
  Transmission Date: 20110831
  Serious: Yes (Death, Life-Threatening, Hospitalization, Other)
  Sender: FDA-Public Use
  Company Number: US-ASTRAZENECA-2010SE50383

PATIENT
  Age: 754 Month
  Sex: Male

DRUGS (5)
  1. VERSED [Concomitant]
     Indication: SEDATION
     Route: 042
  2. SEROQUEL [Suspect]
     Indication: AGITATION
     Route: 042
  3. NIMBEX [Concomitant]
     Indication: SEDATION
     Route: 042
  4. HALDOL [Concomitant]
     Indication: AGITATION
     Route: 042
  5. FENTANYL [Suspect]
     Indication: SEDATION
     Route: 042

REACTIONS (9)
  - ACUTE RESPIRATORY DISTRESS SYNDROME [None]
  - TRANSFUSION [None]
  - COMA [None]
  - DRUG ADMINISTRATION ERROR [None]
  - CATARACT [None]
  - HAEMOGLOBIN DECREASED [None]
  - LUNG DISORDER [None]
  - LUNG INFILTRATION [None]
  - OCULAR HYPERAEMIA [None]
